FAERS Safety Report 4402323-9 (Version None)
Quarter: 2004Q3

REPORT INFORMATION
  Report Type: 
  Country: None (occurrence: None)
  Receive Date: 20040714
  Receipt Date: 20040701
  Transmission Date: 20050211
  Serious: Yes (Hospitalization)
  Sender: FDA-Public Use
  Company Number: 175019

PATIENT
  Age: 41 Year
  Sex: Male
  Weight: 86.1834 kg

DRUGS (1)
  1. AVONEX [Suspect]
     Indication: MULTIPLE SCLEROSIS
     Dosage: 30 MCG QW IM
     Route: 030
     Dates: start: 20010101

REACTIONS (11)
  - BLOOD CHOLESTEROL INCREASED [None]
  - CORONARY ARTERY OCCLUSION [None]
  - DEPRESSION [None]
  - DIARRHOEA [None]
  - FATIGUE [None]
  - INFLUENZA LIKE ILLNESS [None]
  - MYALGIA [None]
  - PAIN OF SKIN [None]
  - POLLAKIURIA [None]
  - ROAD TRAFFIC ACCIDENT [None]
  - SOMNOLENCE [None]
